FAERS Safety Report 20950406 (Version 1)
Quarter: 2022Q2

REPORT INFORMATION
  Report Type: Spontaneous
  Country: US (occurrence: US)
  Receive Date: 20220613
  Receipt Date: 20220613
  Transmission Date: 20220720
  Serious: Yes (Death, Other)
  Sender: FDA-Public Use
  Company Number: US-drreddys-LIT/USA/22/0151024

PATIENT
  Age: 92 Year
  Sex: Male

DRUGS (5)
  1. AZACITIDINE [Suspect]
     Active Substance: AZACITIDINE
     Indication: Lung adenocarcinoma stage I
     Dosage: ON DAYS 1?7
     Route: 042
  2. AZACITIDINE [Suspect]
     Active Substance: AZACITIDINE
     Dosage: 5 CYCLES
  3. AZACITIDINE [Suspect]
     Active Substance: AZACITIDINE
     Dosage: 4 CYCLES WITH VENETOCLAX GIVEN FOR ONLY 14 DAYS
  4. VENETOCLAX [Suspect]
     Active Substance: VENETOCLAX
     Indication: Lung adenocarcinoma stage I
     Dosage: ON DAYS 1?21
  5. VENETOCLAX [Suspect]
     Active Substance: VENETOCLAX
     Dosage: 4 CYCLES WITH VENETOCLAX GIVEN FOR ONLY 14 DAYS AT THE FULL DOSE OF 400MG DAILY

REACTIONS (4)
  - Disease progression [Fatal]
  - Physical deconditioning [Unknown]
  - Nausea [Unknown]
  - Weight decreased [Unknown]
